FAERS Safety Report 4336303-9 (Version None)
Quarter: 2004Q2

REPORT INFORMATION
  Report Type: 
  Country: None (occurrence: None)
  Receive Date: 20040409
  Receipt Date: 20040409
  Transmission Date: 20050107
  Serious: Yes (Hospitalization)
  Sender: FDA-Public Use
  Company Number: None

PATIENT
  Sex: Female
  Weight: 81.1485 kg

DRUGS (1)
  1. INSULIN [Suspect]

REACTIONS (1)
  - BLOOD GLUCOSE ABNORMAL [None]
